FAERS Safety Report 4701588-3 (Version None)
Quarter: 2005Q2

REPORT INFORMATION
  Report Type: 
  Country: None (occurrence: None)
  Receive Date: 20050627
  Receipt Date: 20050615
  Transmission Date: 20051028
  Serious: Yes (Hospitalization)
  Sender: FDA-Public Use
  Company Number: CIP05001452

PATIENT
  Age: 67 Year
  Sex: Female

DRUGS (4)
  1. ACTONEL [Suspect]
     Indication: OSTEOPOROSIS
     Dosage: 35 MG ONCE A WEEK ORAL
     Route: 048
     Dates: start: 20050101
  2. OSCAL 500-D                        (CALCIUM, COLECALCIFEROL) [Concomitant]
  3. METFORMIN HCL [Concomitant]
  4. PURAN T4 (LEVOTHYROXINE SODIUM) [Concomitant]

REACTIONS (4)
  - HEADACHE [None]
  - HYPERTENSIVE CRISIS [None]
  - NAUSEA [None]
  - VOMITING [None]
